FAERS Safety Report 7592947-2 (Version None)
Quarter: 2011Q3

REPORT INFORMATION
  Report Type: 
  Country: None (occurrence: None)
  Receive Date: 20110706
  Receipt Date: 20110615
  Transmission Date: 20111222
  Serious: Yes (Hospitalization)
  Sender: FDA-Public Use
  Company Number: US-GLAXOSMITHKLINE-A0869856A

PATIENT
  Age: 75 Year
  Sex: Female
  Weight: 85 kg

DRUGS (11)
  1. AVANDIA [Suspect]
     Indication: DIABETES MELLITUS
     Dosage: 8MG PER DAY
     Route: 048
     Dates: start: 20020101, end: 20070101
  2. GLYBURIDE [Concomitant]
  3. LESCOL XL [Concomitant]
  4. METFORMIN HCL [Concomitant]
  5. CARAFATE [Concomitant]
  6. LOTENSIN [Concomitant]
  7. HYDROCHLOROTHIAZIDE [Concomitant]
  8. REGLAN [Concomitant]
  9. DILTIAZEM [Concomitant]
  10. GLYNASE [Concomitant]
  11. OMEPRAZOLE [Concomitant]

REACTIONS (2)
  - MYOCARDIAL INFARCTION [None]
  - CORONARY ARTERY DISEASE [None]
